FAERS Safety Report 20633049 (Version 1)
Quarter: 2022Q1

REPORT INFORMATION
  Report Type: Spontaneous
  Country: US (occurrence: None)
  Receive Date: 20220324
  Receipt Date: 20220324
  Transmission Date: 20220423
  Serious: Yes (Death, Hospitalization, Other)
  Sender: FDA-Public Use
  Company Number: 2022A124976

PATIENT
  Age: 81 Year
  Sex: Female
  Weight: 73 kg

DRUGS (2)
  1. ANDEXANET ALFA [Suspect]
     Active Substance: ANDEXANET ALFA
     Indication: Haemorrhage
     Route: 040
  2. RIVAROXABAN [Suspect]
     Active Substance: RIVAROXABAN

REACTIONS (4)
  - Death [Fatal]
  - Blood pressure systolic decreased [Unknown]
  - Electrocardiogram ST segment elevation [Unknown]
  - Haemorrhage intracranial [Unknown]
